FAERS Safety Report 11337168 (Version 1)
Quarter: 2015Q3

REPORT INFORMATION
  Report Type: Spontaneous
  Country: US (occurrence: US)
  Receive Date: 20150804
  Receipt Date: 20150804
  Transmission Date: 20151125
  Serious: Yes (Hospitalization)
  Sender: FDA-Public Use
  Company Number: US-CELGENEUS-USA-2015075713

PATIENT
  Sex: Male

DRUGS (2)
  1. THALOMID [Suspect]
     Active Substance: THALIDOMIDE
     Indication: HIV INFECTION
     Dosage: 200 MILLIGRAM
     Route: 048
     Dates: start: 201506
  2. THALOMID [Suspect]
     Active Substance: THALIDOMIDE
     Indication: OFF LABEL USE

REACTIONS (2)
  - Rash generalised [Recovered/Resolved with Sequelae]
  - Pyrexia [Recovered/Resolved with Sequelae]

NARRATIVE: CASE EVENT DATE: 2015
